FAERS Safety Report 15327528 (Version 4)
Quarter: 2019Q1

REPORT INFORMATION
  Report Type: Spontaneous
  Country: US (occurrence: US)
  Receive Date: 20180828
  Receipt Date: 20190201
  Transmission Date: 20190417
  Serious: Yes (Hospitalization, Other)
  Sender: FDA-Public Use
  Company Number: US-PFIZER INC-2018341612

PATIENT
  Age: 62 Year
  Sex: Female
  Weight: 43.84 kg

DRUGS (2)
  1. LYRICA [Suspect]
     Active Substance: PREGABALIN
     Indication: BACK PAIN
  2. LYRICA [Suspect]
     Active Substance: PREGABALIN
     Indication: NEUROPATHY PERIPHERAL
     Dosage: 100 MG, 3X/DAY
     Route: 048
     Dates: start: 2016, end: 20181223

REACTIONS (9)
  - Lethargy [Unknown]
  - Muscular weakness [Unknown]
  - Seizure [Unknown]
  - Drug withdrawal syndrome [Unknown]
  - Pelvic fracture [Unknown]
  - Feeling abnormal [Unknown]
  - Fall [Unknown]
  - Decreased appetite [Unknown]
  - Decreased interest [Unknown]

NARRATIVE: CASE EVENT DATE: 2018
